FAERS Safety Report 16219005 (Version 2)
Quarter: 2019Q2

REPORT INFORMATION
  Report Type: Spontaneous
  Country: None (occurrence: DE)
  Receive Date: 20190419
  Receipt Date: 20190528
  Transmission Date: 20190711
  Serious: Yes (Hospitalization, Disabling)
  Sender: FDA-Public Use
  Company Number: DE-LABORATOIRE HRA PHARMA-2066059

PATIENT
  Age: 7 Year
  Sex: Female
  Weight: 26 kg

DRUGS (4)
  1. CLOTRIMAZOLE. [Concomitant]
     Active Substance: CLOTRIMAZOLE
  2. LYSODREN [Suspect]
     Active Substance: MITOTANE
     Indication: ADRENOCORTICAL CARCINOMA
     Route: 048
  3. HYDROCORTISONE. [Concomitant]
     Active Substance: HYDROCORTISONE
  4. FLUDROCORTISONE [Concomitant]
     Active Substance: FLUDROCORTISONE

REACTIONS (9)
  - Dizziness [Recovered/Resolved]
  - Asthenia [Recovering/Resolving]
  - Dysphemia [Unknown]
  - Weight decreased [Recovered/Resolved]
  - Dizziness [Recovering/Resolving]
  - Cognitive disorder [Unknown]
  - Weight decreased [Recovering/Resolving]
  - Asthenia [Recovered/Resolved]
  - Aphasia [Unknown]

NARRATIVE: CASE EVENT DATE: 20190401
